FAERS Safety Report 4932734-4 (Version None)
Quarter: 2006Q1

REPORT INFORMATION
  Report Type: 
  Country: None (occurrence: None)
  Receive Date: 20060301
  Receipt Date: 20060301
  Transmission Date: 20060701
  Serious: No
  Sender: FDA-Public Use
  Company Number: None

PATIENT
  Age: 19 Year
  Sex: Male
  Weight: 74.8435 kg

DRUGS (1)
  1. ACCUTANE [Suspect]
     Indication: ACNE
     Dosage: 40 MG   BID   PO
     Route: 048
     Dates: start: 20000601, end: 20020401

REACTIONS (6)
  - ABNORMAL BEHAVIOUR [None]
  - DISTURBANCE IN ATTENTION [None]
  - HALLUCINATION, AUDITORY [None]
  - IMPAIRED WORK ABILITY [None]
  - IMPRISONMENT [None]
  - THINKING ABNORMAL [None]
